FAERS Safety Report 12325246 (Version 1)
Quarter: 2016Q2

REPORT INFORMATION
  Report Type: Spontaneous
  Country: NL (occurrence: NL)
  Receive Date: 20160502
  Receipt Date: 20160502
  Transmission Date: 20160815
  Serious: Yes (Hospitalization)
  Sender: FDA-Public Use
  Company Number: PHHY2016NL058041

PATIENT
  Age: 57 Year
  Sex: Female
  Weight: 80 kg

DRUGS (8)
  1. FOSINOPRIL [Concomitant]
     Active Substance: FOSINOPRIL
     Indication: PRODUCT USED FOR UNKNOWN INDICATION
     Dosage: 10 MG, QD (1 KEER PER DAG 1 STUK(S)
     Route: 048
     Dates: start: 2014
  2. STRIVERDI RESPIMAT [Concomitant]
     Active Substance: OLODATEROL HYDROCHLORIDE
     Indication: PRODUCT USED FOR UNKNOWN INDICATION
     Dosage: 2 DF, QD (1 KEER PER DAG 2 STUK(S)
     Route: 055
     Dates: start: 2015
  3. NITROGLYCERINE [Concomitant]
     Active Substance: NITROGLYCERIN
     Indication: PRODUCT USED FOR UNKNOWN INDICATION
     Dosage: ZONODIG
     Route: 048
     Dates: start: 2010
  4. PREDNISON [Suspect]
     Active Substance: PREDNISONE
     Indication: CHRONIC OBSTRUCTIVE PULMONARY DISEASE
     Dosage: ONGEV 5 X PER JAAR STOOTKUUR
     Route: 048
     Dates: start: 2008
  5. METOPROLOL TARTRATE. [Concomitant]
     Active Substance: METOPROLOL TARTRATE
     Indication: PRODUCT USED FOR UNKNOWN INDICATION
     Route: 048
     Dates: start: 2010, end: 201601
  6. BRILIQUE [Concomitant]
     Active Substance: TICAGRELOR
     Indication: PRODUCT USED FOR UNKNOWN INDICATION
     Route: 048
     Dates: start: 2010
  7. PULMICORT TURBUHALER [Concomitant]
     Active Substance: BUDESONIDE
     Indication: PRODUCT USED FOR UNKNOWN INDICATION
     Dosage: 1 DF, BID (2 KEER PER DAG 2 STUK(S)
     Route: 055
     Dates: start: 2015
  8. SPIRIVA [Concomitant]
     Active Substance: TIOTROPIUM BROMIDE MONOHYDRATE
     Indication: PRODUCT USED FOR UNKNOWN INDICATION
     Dosage: 2 DF, QD (1 KEER PER DAG 2 STUK(S)
     Route: 055
     Dates: start: 2015

REACTIONS (1)
  - Arteriospasm coronary [Recovered/Resolved]

NARRATIVE: CASE EVENT DATE: 20150508
